FAERS Safety Report 8479884-6 (Version None)
Quarter: 2012Q2

REPORT INFORMATION
  Report Type: 
  Country: None (occurrence: None)
  Receive Date: 20120629
  Receipt Date: 20120620
  Transmission Date: 20120825
  Serious: Yes (Other)
  Sender: FDA-Public Use
  Company Number: FR-ASTRAZENECA-2012SE42093

PATIENT
  Age: 12 Year
  Sex: Male

DRUGS (3)
  1. SINGULAIR [Concomitant]
     Indication: ASTHMA
  2. DESLORATADINE [Concomitant]
     Indication: ASTHMA
  3. SYMBICORT [Suspect]
     Indication: ASTHMA
     Dosage: 160/4.5 UG PER DOSE, TWO INHALATIONS PER DAY
     Route: 055
     Dates: start: 20070101

REACTIONS (2)
  - MULTIPLE FRACTURES [None]
  - FALL [None]
